FAERS Safety Report 6981163-0 (Version None)
Quarter: 2010Q3

REPORT INFORMATION
  Report Type: 
  Country: None (occurrence: None)
  Receive Date: 20100914
  Receipt Date: 20100901
  Transmission Date: 20110219
  Serious: Yes (Other)
  Sender: FDA-Public Use
  Company Number: US-PFIZER INC-2010111497

PATIENT
  Sex: Male
  Weight: 79.378 kg

DRUGS (3)
  1. LYRICA [Suspect]
     Indication: NEURALGIA
     Dosage: 50 MG IN THE MORNING, 100 MG AT NIGHT
     Dates: start: 20100801
  2. VITAMIN D [Concomitant]
  3. METFORMIN [Concomitant]
     Indication: DIABETES MELLITUS

REACTIONS (2)
  - INSOMNIA [None]
  - MUSCLE SPASMS [None]
